FAERS Safety Report 5154408-X (Version None)
Quarter: 2006Q4

REPORT INFORMATION
  Report Type: 
  Country: None (occurrence: None)
  Receive Date: 20061114
  Receipt Date: 20061004
  Transmission Date: 20070319
  Serious: Yes (Hospitalization)
  Sender: FDA-Public Use
  Company Number: 231071

PATIENT
  Age: 76 Year
  Sex: Female
  Weight: 68 kg

DRUGS (11)
  1. AVASTIN [Suspect]
     Indication: COLORECTAL CANCER
     Dosage: 515.25 MG, Q3W, INTRAVENOUS
     Route: 042
     Dates: start: 20060324
  2. CAPECITABINE (CAPECITABINE) [Suspect]
     Indication: COLORECTAL CANCER
     Dosage: 3500 MG, D1 4/Q3W, ORAL
     Route: 048
     Dates: start: 20060324
  3. OXALIPLATIN [Suspect]
     Indication: COLORECTAL CANCER
     Dosage: 231.4 MG, Q3W, INTRAVENOUS
     Route: 042
     Dates: start: 20060324
  4. ASPIRIN [Concomitant]
  5. FELODIPIN (FELODIPINE) [Concomitant]
  6. LISINOPRIL [Concomitant]
  7. METOPROLOL TARTRATE [Concomitant]
  8. ALLOPURINOL [Concomitant]
  9. LEVOTHYROXINE SODIUM [Concomitant]
  10. NOVALGIN (DIPYRONE) [Concomitant]
  11. MCP (METOCLOPRAMIDE HYDROCHLORIDE) [Concomitant]

REACTIONS (2)
  - C-REACTIVE PROTEIN INCREASED [None]
  - PYREXIA [None]
